FAERS Safety Report 6943389-1 (Version None)
Quarter: 2010Q3

REPORT INFORMATION
  Report Type: 
  Country: None (occurrence: None)
  Receive Date: 20100826
  Receipt Date: 20100825
  Transmission Date: 20110219
  Serious: Yes (Other)
  Sender: FDA-Public Use
  Company Number: GB-BRISTOL-MYERS SQUIBB COMPANY-15255201

PATIENT
  Age: 38 Year
  Sex: Male

DRUGS (2)
  1. ABILIFY [Suspect]
     Indication: BIPOLAR DISORDER
     Route: 048
     Dates: start: 20100718, end: 20100731
  2. CAMCOLIT [Concomitant]
     Indication: BIPOLAR DISORDER
     Dosage: START DATE: 02-AUG-2010
     Route: 048

REACTIONS (1)
  - NEUROLOGICAL SYMPTOM [None]
